FAERS Safety Report 6227466-9 (Version None)
Quarter: 2009Q2

REPORT INFORMATION
  Report Type: 
  Country: None (occurrence: None)
  Receive Date: 20090612
  Receipt Date: 20090602
  Transmission Date: 20091009
  Serious: Yes (Other)
  Sender: FDA-Public Use
  Company Number: PHHY2008MX25105

PATIENT
  Age: 50 Year
  Sex: Male

DRUGS (4)
  1. DIOVAN HCT [Suspect]
     Indication: HYPERTENSION
     Dosage: 160/12.5 MG 1 TABLET/DAY
     Dates: start: 20080901
  2. DIOVAN HCT [Suspect]
     Dosage: 160/12.5 MG HALF TABLET PER DAY
  3. INTERFERON [Concomitant]
     Dosage: 72 APPLICATION
  4. RIBAVIRIN [Concomitant]

REACTIONS (3)
  - HEPATITIS C [None]
  - HYPOTENSION [None]
  - WEIGHT DECREASED [None]
